FAERS Safety Report 18287040 (Version 2)
Quarter: 2025Q1

REPORT INFORMATION
  Report Type: Report from Study
  Country: US (occurrence: US)
  Receive Date: 20200921
  Receipt Date: 20250107
  Transmission Date: 20250408
  Serious: No
  Sender: TAKEDA
  Company Number: US-SHIRE-US202030496

PATIENT
  Sex: Male

DRUGS (2)
  1. VELAGLUCERASE ALFA [Suspect]
     Active Substance: VELAGLUCERASE ALFA
     Indication: Gaucher^s disease
     Dosage: UNK UNK, Q2WEEKS
     Dates: start: 20200602
  2. VELAGLUCERASE ALFA [Suspect]
     Active Substance: VELAGLUCERASE ALFA
     Indication: Gaucher^s disease type I

REACTIONS (3)
  - Skin fissures [Unknown]
  - Fatigue [Recovering/Resolving]
  - Back pain [Unknown]
